FAERS Safety Report 12885386 (Version 1)
Quarter: 2016Q4

REPORT INFORMATION
  Report Type: Spontaneous
  Country: US (occurrence: US)
  Receive Date: 20161025
  Receipt Date: 20161025
  Transmission Date: 20170207
  Serious: Yes (Death)
  Sender: FDA-Public Use
  Company Number: None

PATIENT
  Age: 78 Year
  Sex: Female
  Weight: 60.75 kg

DRUGS (3)
  1. VITAMINS [Concomitant]
     Active Substance: VITAMINS
  2. PAIN RELIEVERS [Concomitant]
  3. PREMARIN [Suspect]
     Active Substance: ESTROGENS, CONJUGATED
     Indication: MENOPAUSAL SYMPTOMS
     Route: 048

REACTIONS (1)
  - Uterine cancer [None]

NARRATIVE: CASE EVENT DATE: 20140306
